FAERS Safety Report 5241215-2 (Version None)
Quarter: 2007Q1

REPORT INFORMATION
  Report Type: 
  Country: None (occurrence: None)
  Receive Date: 20070215
  Receipt Date: 20070215
  Transmission Date: 20070707
  Serious: Yes (Hospitalization)
  Sender: FDA-Public Use
  Company Number: None

PATIENT
  Age: 81 Year
  Sex: Male

DRUGS (7)
  1. ETODOLAC [Suspect]
     Indication: PAIN
     Dosage: 300 M - Q6H PRN
     Dates: start: 20050501
  2. DSS [Concomitant]
  3. FERROUS SUL TAB [Concomitant]
  4. FINASTERIDE [Concomitant]
  5. OMEPRAZOLE [Concomitant]
  6. TERAZOSIN HCL [Concomitant]
  7. ZOLOFT [Concomitant]

REACTIONS (2)
  - ANAEMIA [None]
  - GASTRIC ULCER [None]
